FAERS Safety Report 19713629 (Version 6)
Quarter: 2021Q4

REPORT INFORMATION
  Report Type: Report from Study
  Country: None (occurrence: US)
  Receive Date: 20210817
  Receipt Date: 20211021
  Transmission Date: 20220304
  Serious: Yes (Hospitalization, Other)
  Sender: FDA-Public Use
  Company Number: US-ABBVIE-21K-163-4036674-00

PATIENT
  Age: 78 Year
  Sex: Female

DRUGS (3)
  1. VENCLEXTA [Suspect]
     Active Substance: VENETOCLAX
     Indication: B-cell prolymphocytic leukaemia
     Route: 048
     Dates: start: 20200724
  2. VENCLEXTA [Suspect]
     Active Substance: VENETOCLAX
     Route: 048
     Dates: start: 202007
  3. CALQUENCE [Concomitant]
     Active Substance: ACALABRUTINIB
     Indication: B-cell prolymphocytic leukaemia

REACTIONS (26)
  - Pulmonary oedema [Unknown]
  - White blood cell count increased [Unknown]
  - Splenomegaly [Unknown]
  - Renal function test abnormal [Unknown]
  - Respiratory tract congestion [Unknown]
  - Chronic obstructive pulmonary disease [Unknown]
  - Oesophageal disorder [Not Recovered/Not Resolved]
  - Muscle twitching [Unknown]
  - Oropharyngeal pain [Recovering/Resolving]
  - Swelling [Unknown]
  - Pharyngeal mass [Unknown]
  - Candida infection [Recovering/Resolving]
  - Dyspnoea [Unknown]
  - Taste disorder [Unknown]
  - Back pain [Unknown]
  - Arthralgia [Unknown]
  - Illness [Unknown]
  - Vulvovaginal pain [Recovering/Resolving]
  - Medication error [Unknown]
  - Rales [Unknown]
  - Fungal pharyngitis [Recovering/Resolving]
  - Vulvovaginal mycotic infection [Recovering/Resolving]
  - Haemoglobin decreased [Recovering/Resolving]
  - Fatigue [Unknown]
  - Abdominal pain [Unknown]
  - Pneumonia [Recovering/Resolving]

NARRATIVE: CASE EVENT DATE: 20211001
